FAERS Safety Report 7498621-5 (Version None)
Quarter: 2011Q2

REPORT INFORMATION
  Report Type: 
  Country: None (occurrence: None)
  Receive Date: 20110524
  Receipt Date: 20110505
  Transmission Date: 20111010
  Serious: Yes (Hospitalization, Other)
  Sender: FDA-Public Use
  Company Number: US-BAYER-201038505NA

PATIENT
  Age: 34 Year
  Sex: Female

DRUGS (5)
  1. YASMIN [Suspect]
     Indication: PREMENSTRUAL SYNDROME
  2. YASMIN [Suspect]
     Indication: ACNE
     Route: 048
     Dates: start: 20050101
  3. CLIDINIUM [Concomitant]
  4. WEIGHT LOSS PILLS [Concomitant]
  5. NEXIUM [Concomitant]

REACTIONS (6)
  - ANXIETY [None]
  - DEPRESSION [None]
  - CHOLECYSTITIS CHRONIC [None]
  - GALLBLADDER INJURY [None]
  - LIVER DISORDER [None]
  - GASTROOESOPHAGEAL REFLUX DISEASE [None]
